FAERS Safety Report 18163516 (Version 1)
Quarter: 2020Q3

REPORT INFORMATION
  Report Type: Spontaneous
  Country: ES (occurrence: ES)
  Receive Date: 20200818
  Receipt Date: 20200818
  Transmission Date: 20201103
  Serious: Yes (Other)
  Sender: FDA-Public Use
  Company Number: ES-AUROBINDO-AUR-APL-2020-039229

PATIENT
  Age: 26 Year
  Sex: Female

DRUGS (3)
  1. AMOXICILLIN / CLAVULANIC ACID FILM?COATED TABLETS 875/125MG [Suspect]
     Active Substance: AMOXICILLIN\CLAVULANIC ACID
     Indication: PERIODONTITIS
     Dosage: 1 DOSAGE FORM, 3 TIMES A DAY (875 / 125 MG CADA 8/H)
     Route: 048
     Dates: start: 20200721, end: 20200727
  2. ESOMEPRAZOL [Concomitant]
     Active Substance: ESOMEPRAZOLE
     Indication: ABDOMINAL PAIN
     Dosage: 20 MILLIGRAM, ONCE A DAY
     Route: 048
     Dates: start: 20190924
  3. CINITAPRIDA [Concomitant]
     Active Substance: CINITAPRIDE
     Indication: ABDOMINAL PAIN
     Dosage: 1 MILLIGRAM, 3 TIMES A DAY
     Route: 048
     Dates: start: 20190812

REACTIONS (1)
  - Clostridium difficile colitis [Recovered/Resolved]

NARRATIVE: CASE EVENT DATE: 20200729
